FAERS Safety Report 19962428 (Version 1)
Quarter: 2021Q4

REPORT INFORMATION
  Report Type: Spontaneous
  Country: US (occurrence: US)
  Receive Date: 20211018
  Receipt Date: 20211018
  Transmission Date: 20220304
  Serious: No
  Sender: FDA-Public Use
  Company Number: US-ALIMERA SCIENCES INC.-US-A16013-21-000198

PATIENT
  Age: 58 Year
  Sex: Male

DRUGS (1)
  1. ILUVIEN [Suspect]
     Active Substance: FLUOCINOLONE ACETONIDE
     Indication: Product used for unknown indication
     Dosage: 0.25 MICROGRAM, QD - UNKNOWN EYE
     Route: 031
     Dates: start: 20210914

REACTIONS (3)
  - Eye pain [Unknown]
  - Needle issue [Unknown]
  - Device failure [Unknown]

NARRATIVE: CASE EVENT DATE: 20210914
